FAERS Safety Report 8934679 (Version 1)
Quarter: 2012Q4

REPORT INFORMATION
  Report Type: 
  Country: DE (occurrence: DE)
  Receive Date: 20121129
  Receipt Date: 20121129
  Transmission Date: 20130627
  Serious: Yes (Other)
  Sender: FDA-Public Use
  Company Number: DE-SHIRE-ALL1-2012-05795

PATIENT
  Sex: Female

DRUGS (1)
  1. XAGRID [Suspect]
     Indication: ESSENTIAL THROMBOCYTHAEMIA
     Dosage: UNK, Unknown
     Route: 048
     Dates: start: 20110610

REACTIONS (2)
  - Pulmonary embolism [Unknown]
  - Pulmonary hypertension [Unknown]
